FAERS Safety Report 21149535 (Version 1)
Quarter: 2022Q3

REPORT INFORMATION
  Report Type: Spontaneous
  Country: CN (occurrence: CN)
  Receive Date: 20220729
  Receipt Date: 20220729
  Transmission Date: 20221027
  Serious: Yes (Other)
  Sender: FDA-Public Use
  Company Number: None

PATIENT
  Age: 50 Year
  Sex: Male
  Weight: 75 kg

DRUGS (1)
  1. MANNITOL [Suspect]
     Active Substance: MANNITOL
     Indication: Reduction of increased intracranial pressure
     Dosage: 125 ML, ONCE DAILY
     Route: 041
     Dates: start: 20220706, end: 20220706

REACTIONS (1)
  - Muscle twitching [Recovered/Resolved]

NARRATIVE: CASE EVENT DATE: 20220706
